FAERS Safety Report 4772344-5 (Version None)
Quarter: 2005Q3

REPORT INFORMATION
  Report Type: 
  Country: None (occurrence: None)
  Receive Date: 20050916
  Receipt Date: 20050901
  Transmission Date: 20060218
  Serious: Yes (Death)
  Sender: FDA-Public Use
  Company Number: 2005S1005331

PATIENT
  Age: 76 Year
  Sex: Male
  Weight: 60.782 kg

DRUGS (6)
  1. CLOZAPINE [Suspect]
     Indication: SCHIZOPHRENIA
     Dosage: SEE IMAGE
     Route: 048
     Dates: start: 20040921, end: 20050601
  2. MORPHINE [Concomitant]
  3. POTASSIUIM CHLORIDE [Concomitant]
  4. LAMOTRIGINE [Concomitant]
  5. TOLTERODINE [Concomitant]
  6. OMEPRAZOLE [Concomitant]

REACTIONS (1)
  - DEATH [None]
